FAERS Safety Report 15895687 (Version 5)
Quarter: 2021Q3

REPORT INFORMATION
  Report Type: Spontaneous
  Country: US (occurrence: US)
  Receive Date: 20190131
  Receipt Date: 20210726
  Transmission Date: 20211014
  Serious: Yes (Other)
  Sender: FDA-Public Use
  Company Number: US-PFIZER INC-2019045300

PATIENT
  Age: 69 Year
  Sex: Female

DRUGS (4)
  1. PREMARIN [Concomitant]
     Active Substance: ESTROGENS, CONJUGATED
  2. ESTRING [Suspect]
     Active Substance: ESTRADIOL
     Indication: MENOPAUSE
     Dosage: UNK
     Route: 067
  3. ESTRING [Suspect]
     Active Substance: ESTRADIOL
     Indication: LICHEN SCLEROSUS
  4. ESTRING [Suspect]
     Active Substance: ESTRADIOL
     Indication: PAIN

REACTIONS (4)
  - Off label use [Unknown]
  - Foot fracture [Unknown]
  - Arthritis [Unknown]
  - Drug effective for unapproved indication [Unknown]
